FAERS Safety Report 5637792-X (Version None)
Quarter: 2008Q1

REPORT INFORMATION
  Report Type: 
  Country: None (occurrence: None)
  Receive Date: 20080220
  Receipt Date: 20080212
  Transmission Date: 20080703
  Serious: Yes (Other)
  Sender: FDA-Public Use
  Company Number: 2008SP003221

PATIENT
  Age: 65 Year
  Sex: Female
  Weight: 80.7403 kg

DRUGS (2)
  1. PEG-INTRON [Suspect]
     Indication: HEPATITIS C
     Dosage: SC
     Route: 058
     Dates: start: 20071208
  2. RIBAVIRIN [Suspect]
     Indication: HEPATITIS C
     Dosage: PO
     Route: 048
     Dates: start: 20071208

REACTIONS (9)
  - ABDOMINAL PAIN UPPER [None]
  - ANGINA PECTORIS [None]
  - BRONCHITIS [None]
  - CONSTIPATION [None]
  - DYSGEUSIA [None]
  - FATIGUE [None]
  - PLEURISY [None]
  - PNEUMONIA [None]
  - WEIGHT DECREASED [None]
